FAERS Safety Report 7049552-6 (Version None)
Quarter: 2010Q4

REPORT INFORMATION
  Report Type: 
  Country: None (occurrence: None)
  Receive Date: 20101018
  Receipt Date: 20101006
  Transmission Date: 20110411
  Serious: Yes (Hospitalization)
  Sender: FDA-Public Use
  Company Number: JP-SANOFI-AVENTIS-2010SA060925

PATIENT
  Age: 80 Year
  Sex: Male
  Weight: 67 kg

DRUGS (6)
  1. CLOPIDOGREL BISULFATE [Suspect]
     Indication: ANGINA UNSTABLE
     Route: 048
  2. CLOPIDOGREL BISULFATE [Suspect]
     Route: 048
  3. ASPIRIN [Suspect]
     Route: 065
  4. ASPIRIN [Suspect]
     Indication: ANGINA UNSTABLE
     Route: 065
  5. HEPARIN SODIUM [Concomitant]
     Dosage: TOTAL DOSE: 8000 UNITS DURING OPERATION
     Route: 065
  6. HEPARIN SODIUM [Concomitant]
     Dosage: 1 DAY AFTER OPERATION
     Route: 065

REACTIONS (3)
  - POST PROCEDURAL COMPLICATION [None]
  - PUNCTURE SITE HAEMORRHAGE [None]
  - VASCULAR PSEUDOANEURYSM [None]
